FAERS Safety Report 18756710 (Version 1)
Quarter: 2021Q1

REPORT INFORMATION
  Report Type: Spontaneous
  Country: US (occurrence: US)
  Receive Date: 20210119
  Receipt Date: 20210119
  Transmission Date: 20210419
  Serious: No
  Sender: FDA-Public Use
  Company Number: US-RECORDATI RARE DISEASES-2105522

PATIENT
  Age: 42 Year
  Sex: Female

DRUGS (3)
  1. CYSTADROPS [Suspect]
     Active Substance: CYSTEAMINE HYDROCHLORIDE
     Dates: start: 2020
  2. CYSTADROPS [Suspect]
     Active Substance: CYSTEAMINE HYDROCHLORIDE
     Indication: CYSTINOSIS
     Dates: start: 2020
  3. CYSTADROPS [Suspect]
     Active Substance: CYSTEAMINE HYDROCHLORIDE
     Dates: start: 2020

REACTIONS (1)
  - Eye irritation [Unknown]

NARRATIVE: CASE EVENT DATE: 2020
